FAERS Safety Report 5282294-6 (Version None)
Quarter: 2007Q1

REPORT INFORMATION
  Report Type: 
  Country: None (occurrence: None)
  Receive Date: 20070331
  Receipt Date: 20070320
  Transmission Date: 20070707
  Serious: Yes (Other)
  Sender: FDA-Public Use
  Company Number: US-PFIZER INC-2007023659

PATIENT

DRUGS (1)
  1. CELEBREX [Suspect]

REACTIONS (1)
  - CONVULSION [None]
